FAERS Safety Report 12184414 (Version 2)
Quarter: 2016Q1

REPORT INFORMATION
  Report Type: Report from Study
  Country: NO (occurrence: NO)
  Receive Date: 20160316
  Receipt Date: 20160328
  Transmission Date: 20160526
  Serious: Yes (Death)
  Sender: FDA-Public Use
  Company Number: NO-ROCHE-1726318

PATIENT

DRUGS (3)
  1. ALTEPLASE [Suspect]
     Active Substance: ALTEPLASE
     Indication: DEEP VEIN THROMBOSIS
     Dosage: 20 MG ALTEPLASE IN 500 ML 0.9 PERCENT SALINE : INFUSION RATE OF 0.01 MG/KG PER HOUR
     Route: 042
  2. HEPARIN [Concomitant]
     Active Substance: HEPARIN SODIUM
     Indication: PRODUCT USED FOR UNKNOWN INDICATION
     Dosage: GIVEN AT THE START OF THE PROCEDURE
     Route: 040
  3. HEPARIN [Concomitant]
     Active Substance: HEPARIN SODIUM
     Dosage: FOLLOWED BY A CONTINUOUS INFUSION OF UNFRACTIONATED HEPARIN 15 U/KG PER HOUR
     Route: 042

REACTIONS (1)
  - Death [Fatal]
